FAERS Safety Report 13123874 (Version 7)
Quarter: 2018Q4

REPORT INFORMATION
  Report Type: Spontaneous
  Country: CA (occurrence: CA)
  Receive Date: 20170118
  Receipt Date: 20181226
  Transmission Date: 20190204
  Serious: Yes (Life-Threatening, Hospitalization, Other)
  Sender: FDA-Public Use
  Company Number: CA-ROCHE-1880436

PATIENT
  Age: 50 Year
  Sex: Female

DRUGS (16)
  1. XOLAIR [Suspect]
     Active Substance: OMALIZUMAB
     Route: 058
     Dates: start: 20160831
  2. XOLAIR [Suspect]
     Active Substance: OMALIZUMAB
     Route: 058
     Dates: start: 20161109
  3. XOLAIR [Suspect]
     Active Substance: OMALIZUMAB
     Route: 058
  4. XOLAIR [Suspect]
     Active Substance: OMALIZUMAB
     Route: 058
     Dates: start: 20170323
  5. XOLAIR [Suspect]
     Active Substance: OMALIZUMAB
     Route: 058
     Dates: start: 20180719
  6. XOLAIR [Suspect]
     Active Substance: OMALIZUMAB
     Route: 058
     Dates: start: 201807
  7. XOLAIR [Suspect]
     Active Substance: OMALIZUMAB
     Route: 058
     Dates: start: 20161130
  8. XOLAIR [Suspect]
     Active Substance: OMALIZUMAB
     Route: 058
     Dates: start: 20180316
  9. XOLAIR [Suspect]
     Active Substance: OMALIZUMAB
     Route: 058
     Dates: start: 20160811
  10. XOLAIR [Suspect]
     Active Substance: OMALIZUMAB
     Route: 058
     Dates: start: 20161221
  11. XOLAIR [Suspect]
     Active Substance: OMALIZUMAB
     Route: 058
     Dates: start: 20160721
  12. SALBUTAMOL [Suspect]
     Active Substance: ALBUTEROL
     Indication: PRODUCT USED FOR UNKNOWN INDICATION
     Route: 065
  13. XOLAIR [Suspect]
     Active Substance: OMALIZUMAB
     Route: 058
     Dates: start: 20160921
  14. XOLAIR [Suspect]
     Active Substance: OMALIZUMAB
     Indication: ASTHMA
     Route: 058
     Dates: start: 20060607
  15. XOLAIR [Suspect]
     Active Substance: OMALIZUMAB
     Dosage: (75 MG IN BOTH ARMS)
     Route: 058
     Dates: start: 20170530
  16. EPIPEN [Suspect]
     Active Substance: EPINEPHRINE
     Indication: PRODUCT USED FOR UNKNOWN INDICATION
     Route: 065

REACTIONS (35)
  - Dust allergy [Recovering/Resolving]
  - Perfume sensitivity [Unknown]
  - Chest discomfort [Recovered/Resolved]
  - Anaphylactic reaction [Unknown]
  - Dysphagia [Unknown]
  - Dyspnoea [Unknown]
  - Muscle tightness [Unknown]
  - Chronic sinusitis [Unknown]
  - Larynx irritation [Unknown]
  - Malaise [Unknown]
  - Immunodeficiency [Recovering/Resolving]
  - Anxiety [Unknown]
  - Depression [Unknown]
  - Caffeine allergy [Unknown]
  - Nasal congestion [Unknown]
  - Obstructive airways disorder [Not Recovered/Not Resolved]
  - Dysphonia [Recovering/Resolving]
  - Decreased appetite [Unknown]
  - Drug hypersensitivity [Unknown]
  - Speech disorder [Not Recovered/Not Resolved]
  - Drug ineffective [Unknown]
  - Feeling abnormal [Recovering/Resolving]
  - Asthma [Unknown]
  - Blood pressure systolic increased [Unknown]
  - Vocal cord dysfunction [Unknown]
  - Pulmonary oedema [Unknown]
  - Smoke sensitivity [Unknown]
  - Forced vital capacity abnormal [Unknown]
  - Throat tightness [Recovered/Resolved]
  - Insomnia [Unknown]
  - Hypersensitivity [Unknown]
  - Hormone level abnormal [Recovering/Resolving]
  - Multiple chemical sensitivity [Unknown]
  - Post-traumatic stress disorder [Unknown]
  - Injection site hypersensitivity [Unknown]

NARRATIVE: CASE EVENT DATE: 2016
